FAERS Safety Report 21086966 (Version 1)
Quarter: 2022Q3

REPORT INFORMATION
  Report Type: Spontaneous
  Country: US (occurrence: None)
  Receive Date: 20220714
  Receipt Date: 20220714
  Transmission Date: 20221026
  Serious: Yes (Hospitalization)
  Sender: FDA-Public Use
  Company Number: None

PATIENT
  Age: 72 Year
  Sex: Male

DRUGS (1)
  1. METFORMIN [Suspect]
     Active Substance: METFORMIN HYDROCHLORIDE
     Indication: Diabetes mellitus
     Dosage: FREQUENCY : DAILY;?
     Route: 048
     Dates: start: 20211223, end: 20220410

REACTIONS (5)
  - Mental status changes [None]
  - Diarrhoea [None]
  - Dehydration [None]
  - Acute kidney injury [None]
  - Lactic acidosis [None]

NARRATIVE: CASE EVENT DATE: 20220411
